FAERS Safety Report 10189207 (Version 1)
Quarter: 2014Q2

REPORT INFORMATION
  Report Type: Spontaneous
  Country: US (occurrence: None)
  Receive Date: 20140521
  Receipt Date: 20140521
  Transmission Date: 20141212
  Serious: No
  Sender: FDA-Public Use
  Company Number: None

PATIENT
  Age: 76 Year
  Sex: Female

DRUGS (1)
  1. FORTEO 20 MCG LILLY [Suspect]
     Dosage: 20 MCG DAILY S
     Dates: start: 201402, end: 201405

REACTIONS (1)
  - Blood sodium abnormal [None]
